FAERS Safety Report 6588172-4 (Version None)
Quarter: 2010Q1

REPORT INFORMATION
  Report Type: 
  Country: None (occurrence: None)
  Receive Date: 20100202
  Receipt Date: 20090910
  Transmission Date: 20100710
  Serious: No
  Sender: FDA-Public Use
  Company Number: 2009-00591

PATIENT
  Age: 64 Year
  Sex: Female
  Weight: 86.1834 kg

DRUGS (4)
  1. ZICAM COLD REMEDY GEL SWABS [Suspect]
     Dosage: QID, OFF AND ON; YEARS AGO- ^MAYBE IN JUN^
  2. ZICAM COLD REMEDY GEL SWABS [Suspect]
     Dosage: QID, OFF AND ON; YEARS AGO-^MAYBE IN JUN^
  3. NASONEX [Concomitant]
  4. ADVAIR DISKUS 100/50 [Concomitant]

REACTIONS (1)
  - ANOSMIA [None]
